FAERS Safety Report 8943743 (Version 1)
Quarter: 2012Q4

REPORT INFORMATION
  Report Type: 
  Country: HU (occurrence: HU)
  Receive Date: 20121204
  Receipt Date: 20121204
  Transmission Date: 20130627
  Serious: Yes (Death, Life-Threatening, Hospitalization, Disabling, Other)
  Sender: FDA-Public Use
  Company Number: HU-RANBAXY-2011RR-51344

PATIENT
  Age: 18 Year
  Sex: Male

DRUGS (10)
  1. RISPERIDONE [Suspect]
     Indication: SCHIZOPHRENIA
     Dosage: 8 mg/day
     Route: 065
  2. CLONAZEPAM [Suspect]
     Indication: SCHIZOPHRENIA
     Dosage: up to 4 mg/day
     Route: 065
  3. HALOPERIDOL [Suspect]
     Indication: PSYCHOTIC DISORDER
     Dosage: 5 mg/day
     Route: 065
  4. BIPERIDEN [Suspect]
     Indication: PRODUCT USED FOR UNKNOWN INDICATION
     Dosage: 2 mg, tid
     Route: 065
  5. BIPERIDEN [Suspect]
     Indication: PRODUCT USED FOR UNKNOWN INDICATION
     Dosage: 10 mg/day
     Route: 065
     Dates: end: 200910
  6. OLANZAPINE [Suspect]
     Indication: SCHIZOPHRENIA
     Dosage: 10 mg/day
     Route: 065
  7. CLOZAPINE [Suspect]
     Indication: PRODUCT USED FOR UNKNOWN INDICATION
     Dosage: 225 mg/day
     Route: 065
     Dates: start: 200910
  8. MIDAZOLAM [Suspect]
     Indication: DYSTONIA
     Dosage: up to 500 mg/day
     Route: 042
  9. CLONAZEPAM [Suspect]
     Indication: DYSTONIA
     Dosage: UNK
     Route: 040
  10. CLOZAPINE [Concomitant]
     Indication: DYSTONIA
     Dosage: 225 mg/day postoperatively
     Route: 065

REACTIONS (2)
  - Dystonia [Recovering/Resolving]
  - Dystonia [Recovering/Resolving]
